FAERS Safety Report 7001982-4 (Version None)
Quarter: 2010Q3

REPORT INFORMATION
  Report Type: 
  Country: None (occurrence: None)
  Receive Date: 20100920
  Receipt Date: 20100910
  Transmission Date: 20110219
  Serious: Yes (Hospitalization)
  Sender: FDA-Public Use
  Company Number: A0881804A

PATIENT
  Age: 50 Year
  Sex: Male

DRUGS (1)
  1. AVANDIA [Suspect]
     Indication: DIABETES MELLITUS
     Dosage: 2MG PER DAY
     Route: 048
     Dates: start: 20040101, end: 20060101

REACTIONS (6)
  - CARDIAC FAILURE CONGESTIVE [None]
  - HEART INJURY [None]
  - MACULAR OEDEMA [None]
  - NEPHROPATHY [None]
  - PNEUMONIA [None]
  - WEIGHT INCREASED [None]
